FAERS Safety Report 21437924 (Version 1)
Quarter: 2022Q4

REPORT INFORMATION
  Report Type: Spontaneous
  Country: JP (occurrence: JP)
  Receive Date: 20221011
  Receipt Date: 20221011
  Transmission Date: 20230113
  Serious: Yes (Other)
  Sender: FDA-Public Use
  Company Number: JP-KYOWAKIRIN-2022AKK013965

PATIENT
  Age: 71 Year
  Sex: Male

DRUGS (5)
  1. ROMIPLOSTIM [Suspect]
     Active Substance: ROMIPLOSTIM
     Indication: Immune thrombocytopenia
     Dosage: UNK, QWK
     Route: 058
     Dates: start: 20220419, end: 20220906
  2. ENTRESTO [Concomitant]
     Active Substance: SACUBITRIL\VALSARTAN
     Indication: Cardiac failure
     Dosage: 50 MICROGRAM, QMO
     Route: 048
     Dates: start: 20220622, end: 20220906
  3. CLARITHROMYCIN [Concomitant]
     Active Substance: CLARITHROMYCIN
     Indication: Asthma
     Dosage: 200 MILLIGRAM, QD
     Route: 048
     Dates: start: 20211011
  4. AMBROXOL HYDROCHLORIDE [Concomitant]
     Active Substance: AMBROXOL HYDROCHLORIDE
     Indication: Asthma
     Dosage: 45 MILLIGRAM, QD
     Route: 048
     Dates: start: 20220302
  5. SPIRIVA [Concomitant]
     Active Substance: TIOTROPIUM BROMIDE MONOHYDRATE
     Indication: Asthma
     Dosage: 5 MICROGRAM
     Dates: start: 20211008

REACTIONS (1)
  - Glomerular filtration rate decreased [Recovering/Resolving]

NARRATIVE: CASE EVENT DATE: 20220906
